FAERS Safety Report 5099215-1 (Version None)
Quarter: 2006Q3

REPORT INFORMATION
  Report Type: 
  Country: None (occurrence: None)
  Receive Date: 20060731
  Receipt Date: 20051014
  Transmission Date: 20061208
  Serious: Yes (Other)
  Sender: FDA-Public Use
  Company Number: 218635

PATIENT
  Age: 51 Year
  Sex: Female

DRUGS (6)
  1. HERCEPTIN [Suspect]
     Indication: BREAST CANCER
     Dosage: SEE IMAGE
     Dates: start: 20050920
  2. HERCEPTIN [Suspect]
     Indication: BREAST CANCER
     Dosage: SEE IMAGE
     Dates: start: 20050927
  3. NORVASC [Concomitant]
  4. CYMBALTA [Concomitant]
  5. ATENOLOL [Concomitant]
  6. ASPIRIN [Concomitant]

REACTIONS (2)
  - BREAST PAIN [None]
  - ERYTHEMA [None]
